FAERS Safety Report 6678814-7 (Version None)
Quarter: 2010Q2

REPORT INFORMATION
  Report Type: 
  Country: None (occurrence: None)
  Receive Date: 20100413
  Receipt Date: 20100406
  Transmission Date: 20101027
  Serious: Yes (Hospitalization)
  Sender: FDA-Public Use
  Company Number: US-ASTRAZENECA-2010SE15722

PATIENT
  Sex: Female

DRUGS (15)
  1. SEROQUEL XR [Suspect]
     Route: 048
  2. XYREM [Concomitant]
  3. CONCERTA [Concomitant]
  4. TOPAMAX [Concomitant]
  5. ADDERALL 30 [Concomitant]
  6. ATIVAN [Concomitant]
     Dosage: BID
  7. PROVIGIL [Concomitant]
  8. PROAIR HFA [Concomitant]
  9. SYMBICORT [Concomitant]
  10. CARAFATE [Concomitant]
  11. SPIRIVA [Concomitant]
  12. ZANTAC [Concomitant]
  13. ZOCOR [Concomitant]
  14. CYMBALTA [Concomitant]
  15. VITAMIN D [Concomitant]

REACTIONS (2)
  - CONFUSIONAL STATE [None]
  - SOMNOLENCE [None]
